FAERS Safety Report 17153920 (Version 1)
Quarter: 2019Q4

REPORT INFORMATION
  Report Type: Spontaneous
  Country: PL (occurrence: PL)
  Receive Date: 20191213
  Receipt Date: 20191213
  Transmission Date: 20200122
  Serious: Yes (Other)
  Sender: FDA-Public Use
  Company Number: PL-BAUSCH-BL-2019-064351

PATIENT
  Age: 22 Year
  Sex: Male

DRUGS (3)
  1. BENDAMUSTINE [Suspect]
     Active Substance: BENDAMUSTINE
     Indication: HODGKIN^S DISEASE NODULAR SCLEROSIS STAGE IV
     Dosage: GBD; 3 CYCLES
     Route: 065
     Dates: start: 201602, end: 201604
  2. DEXAMETHASONE. [Suspect]
     Active Substance: DEXAMETHASONE
     Indication: HODGKIN^S DISEASE NODULAR SCLEROSIS STAGE IV
     Dosage: GBD; 3 CYCLES
     Route: 065
     Dates: start: 201602, end: 201604
  3. GEMCITABINE. [Suspect]
     Active Substance: GEMCITABINE
     Indication: HODGKIN^S DISEASE NODULAR SCLEROSIS STAGE IV
     Dosage: GBD; 3 CYCLES
     Route: 065
     Dates: start: 201602, end: 201604

REACTIONS (2)
  - Upper respiratory tract infection [Unknown]
  - Pyrexia [Unknown]

NARRATIVE: CASE EVENT DATE: 2016
